FAERS Safety Report 5151472-9 (Version None)
Quarter: 2006Q4

REPORT INFORMATION
  Report Type: 
  Country: None (occurrence: None)
  Receive Date: 20061115
  Receipt Date: 20061106
  Transmission Date: 20070319
  Serious: Yes (Other)
  Sender: FDA-Public Use
  Company Number: US-SANOFI-SYNTHELABO-A03200606718

PATIENT
  Sex: Female
  Weight: 74.4 kg

DRUGS (3)
  1. TRAZODONE HCL [Concomitant]
     Dosage: UNK
     Route: 048
  2. IBUPROFEN [Concomitant]
     Dosage: UNK
     Route: 048
  3. PLAQUENIL [Suspect]
     Indication: DRUG USE FOR UNKNOWN INDICATION
     Route: 048
     Dates: start: 20040101

REACTIONS (1)
  - MACULAR DEGENERATION [None]
